FAERS Safety Report 13123936 (Version 2)
Quarter: 2017Q2

REPORT INFORMATION
  Report Type: Spontaneous
  Country: US (occurrence: US)
  Receive Date: 20170118
  Receipt Date: 20170614
  Transmission Date: 20170830
  Serious: Yes (Hospitalization, Other)
  Sender: FDA-Public Use
  Company Number: US-ASTRAZENECA-2017SE03698

PATIENT
  Age: 47 Year
  Sex: Female
  Weight: 122 kg

DRUGS (8)
  1. METFORMIN HYDROCHLORIDE. [Concomitant]
     Active Substance: METFORMIN HYDROCHLORIDE
     Indication: DIABETES MELLITUS
     Route: 048
     Dates: start: 201608
  2. NITROGLYCERIN. [Concomitant]
     Active Substance: NITROGLYCERIN
     Indication: CHEST PAIN
     Dosage: 0.4MG AS REQUIRED
     Route: 060
  3. BRILINTA [Suspect]
     Active Substance: TICAGRELOR
     Indication: MYOCARDIAL INFARCTION
     Route: 048
     Dates: start: 201311
  4. ASPIRIN. [Concomitant]
     Active Substance: ASPIRIN
     Route: 048
  5. LISINOPRIL. [Suspect]
     Active Substance: LISINOPRIL
     Indication: HYPERTENSION
     Route: 048
     Dates: start: 201608
  6. CARVEDILOL. [Concomitant]
     Active Substance: CARVEDILOL
     Indication: CARDIAC DISORDER
     Route: 048
     Dates: start: 201611
  7. BRILINTA [Suspect]
     Active Substance: TICAGRELOR
     Indication: STENT PLACEMENT
     Route: 048
     Dates: start: 201311
  8. PRAVASTATIN. [Concomitant]
     Active Substance: PRAVASTATIN
     Indication: BLOOD CHOLESTEROL ABNORMAL
     Route: 048

REACTIONS (8)
  - Amnesia [Unknown]
  - Myocardial infarction [Unknown]
  - Drug dose omission [Unknown]
  - Off label use [Unknown]
  - Product use issue [Unknown]
  - Chest pain [Unknown]
  - Hypertension [Unknown]
  - Blood cholesterol abnormal [Unknown]

NARRATIVE: CASE EVENT DATE: 2013
